FAERS Safety Report 5182914-0 (Version None)
Quarter: 2006Q4

REPORT INFORMATION
  Report Type: 
  Country: None (occurrence: None)
  Receive Date: 20061220
  Receipt Date: 20061214
  Transmission Date: 20070319
  Serious: Yes (Hospitalization, Other)
  Sender: FDA-Public Use
  Company Number: FR-AVENTIS-200614418FR

PATIENT
  Age: 74 Year
  Sex: Male

DRUGS (2)
  1. ARAVA [Suspect]
     Indication: RHEUMATOID ARTHRITIS
     Route: 048
     Dates: start: 20040101, end: 20061201
  2. KERLONE                            /00706301/ [Concomitant]
     Indication: HYPERTENSION
     Route: 048

REACTIONS (2)
  - COLON CANCER [None]
  - MESOTHELIOMA [None]
